FAERS Safety Report 6971266-9 (Version None)
Quarter: 2010Q3

REPORT INFORMATION
  Report Type: 
  Country: None (occurrence: None)
  Receive Date: 20100908
  Receipt Date: 20100830
  Transmission Date: 20110219
  Serious: Yes (Death, Congenital Anomaly)
  Sender: FDA-Public Use
  Company Number: IE-WATSON-2010-10813

PATIENT

DRUGS (3)
  1. CRINONE (WATSON LABORATORIES) [Suspect]
     Indication: LUTEAL PHASE DEFICIENCY
     Dosage: 8%, 2 IN 1 D, DRUG TAKEN BY PATIENT'S MOTHER
     Route: 064
     Dates: start: 20090404, end: 20090418
  2. PURAGON 300 (FOLLITROPIN BETA) [Concomitant]
     Indication: PRODUCT USED FOR UNKNOWN INDICATION
     Dosage: 300
     Route: 065
  3. SUPRECUR [Concomitant]
     Indication: PRODUCT USED FOR UNKNOWN INDICATION
     Dosage: PRIOR TO OOCYTE RETRIEVAL
     Route: 065

REACTIONS (3)
  - ABORTION INDUCED [None]
  - EXOMPHALOS [None]
  - TRISOMY 21 [None]
